FAERS Safety Report 16521285 (Version 6)
Quarter: 2019Q3

REPORT INFORMATION
  Report Type: Report from Study
  Country: US (occurrence: US)
  Receive Date: 20190703
  Receipt Date: 20190916
  Transmission Date: 20191004
  Serious: Yes (Other)
  Sender: FDA-Public Use
  Company Number: US-ALEXION PHARMACEUTICALS INC.-A201909761

PATIENT
  Sex: Male

DRUGS (1)
  1. SOLIRIS [Suspect]
     Active Substance: ECULIZUMAB
     Indication: MYASTHENIA GRAVIS
     Dosage: UNK
     Route: 065

REACTIONS (8)
  - Blood urine present [Unknown]
  - Blood lactate dehydrogenase abnormal [Recovering/Resolving]
  - Fatigue [Unknown]
  - Therapeutic product effect incomplete [Unknown]
  - Reticulocyte count abnormal [Recovering/Resolving]
  - Haemoglobin decreased [Unknown]
  - Dyspnoea exertional [Unknown]
  - Asthenia [Not Recovered/Not Resolved]

NARRATIVE: CASE EVENT DATE: 20190718
